FAERS Safety Report 20993840 (Version 2)
Quarter: 2022Q3

REPORT INFORMATION
  Report Type: Spontaneous
  Country: US (occurrence: US)
  Receive Date: 20220622
  Receipt Date: 20220924
  Transmission Date: 20221026
  Serious: No
  Sender: FDA-Public Use
  Company Number: US-CTI BIOPHARMA-2022US02798

PATIENT

DRUGS (1)
  1. VONJO [Suspect]
     Active Substance: PACRITINIB
     Indication: Myelofibrosis
     Dosage: 200 MILLIGRAM, BID
     Route: 048
     Dates: start: 20220420

REACTIONS (9)
  - Feeling abnormal [Unknown]
  - Accidental underdose [Unknown]
  - Platelet count decreased [Unknown]
  - Platelet transfusion [Unknown]
  - Fatigue [Unknown]
  - Toothache [Unknown]
  - Swelling face [Unknown]
  - Tooth abscess [Unknown]
  - Haemoglobin increased [Unknown]

NARRATIVE: CASE EVENT DATE: 20220426
